FAERS Safety Report 10597720 (Version 1)
Quarter: 2014Q4

REPORT INFORMATION
  Report Type: Spontaneous
  Country: US (occurrence: None)
  Receive Date: 20141120
  Receipt Date: 20141120
  Transmission Date: 20150529
  Serious: Yes (Hospitalization)
  Sender: FDA-Public Use
  Company Number: None

PATIENT
  Age: 17 Year
  Sex: Female
  Weight: 125 kg

DRUGS (2)
  1. MITOXANTRONE HYDROCHLORIDE. [Suspect]
     Active Substance: MITOXANTRONE HYDROCHLORIDE
     Dates: end: 20141105
  2. CYTARABINE. [Suspect]
     Active Substance: CYTARABINE
     Dates: end: 20141103

REACTIONS (9)
  - Streptococcal sepsis [None]
  - Abdominal pain [None]
  - Pneumonia klebsiella [None]
  - Vomiting [None]
  - Wound [None]
  - Lung disorder [None]
  - Pulmonary mass [None]
  - Nausea [None]
  - Hypotension [None]

NARRATIVE: CASE EVENT DATE: 20141112
